FAERS Safety Report 4757584-3 (Version None)
Quarter: 2005Q3

REPORT INFORMATION
  Report Type: 
  Country: None (occurrence: None)
  Receive Date: 20050831
  Receipt Date: 20050823
  Transmission Date: 20060218
  Serious: Yes (Death, Life-Threatening, Hospitalization, Disabling, Other)
  Sender: FDA-Public Use
  Company Number: US-MERCK-0508USA03767

PATIENT
  Sex: Female

DRUGS (3)
  1. CANCIDAS [Suspect]
     Indication: CANDIDIASIS
     Route: 051
     Dates: start: 20050801, end: 20050801
  2. FLUCONAZOLE [Concomitant]
     Route: 065
  3. AMPHOTERICIN B [Concomitant]
     Route: 065

REACTIONS (2)
  - DEATH [None]
  - PYREXIA [None]
